FAERS Safety Report 13975808 (Version 5)
Quarter: 2018Q1

REPORT INFORMATION
  Report Type: Spontaneous
  Country: US (occurrence: US)
  Receive Date: 20170914
  Receipt Date: 20180220
  Transmission Date: 20180508
  Serious: Yes (Death, Hospitalization, Other)
  Sender: FDA-Public Use
  Company Number: US-ASTELLAS-2017US019314

PATIENT
  Age: 94 Year
  Sex: Male

DRUGS (6)
  1. DOXAZOSIN MESILATE [Concomitant]
     Active Substance: DOXAZOSIN MESYLATE
     Indication: PRODUCT USED FOR UNKNOWN INDICATION
     Route: 048
  2. SIMBRINZA [Concomitant]
     Active Substance: BRIMONIDINE TARTRATE\BRINZOLAMIDE
     Indication: GLAUCOMA
     Dosage: 1 TO 0.2%, TWICE DAILY
     Route: 047
  3. WARFARIN SODIUM. [Concomitant]
     Active Substance: WARFARIN SODIUM
     Indication: ANTICOAGULANT THERAPY
     Dosage: 5 MG, UNKNOWN FREQ. (5 TIMES WEEKLY)
     Route: 048
     Dates: start: 20170924
  4. TRAVATAN Z [Concomitant]
     Active Substance: TRAVOPROST
     Indication: GLAUCOMA
     Dosage: 0.004 %, ONCE DAILY
     Route: 047
  5. XTANDI [Suspect]
     Active Substance: ENZALUTAMIDE
     Indication: PROSTATE CANCER
     Route: 048
     Dates: start: 20170518
  6. BETOPTIC S [Concomitant]
     Active Substance: BETAXOLOL HYDROCHLORIDE
     Indication: GLAUCOMA
     Dosage: UNK UNK, UNKNOWN FREQ.
     Route: 047

REACTIONS (8)
  - Diarrhoea [Unknown]
  - Pneumonia aspiration [Fatal]
  - Kidney infection [Unknown]
  - Dysphagia [Recovering/Resolving]
  - Fall [Unknown]
  - Ankle fracture [Recovering/Resolving]
  - Urinary tract infection [Unknown]
  - Intentional dose omission [Unknown]

NARRATIVE: CASE EVENT DATE: 20170924
